FAERS Safety Report 10142369 (Version 2)
Quarter: 2014Q2

REPORT INFORMATION
  Report Type: Report from Study
  Country: DE (occurrence: DE)
  Receive Date: 20140430
  Receipt Date: 20140521
  Transmission Date: 20141212
  Serious: Yes (Hospitalization)
  Sender: FDA-Public Use
  Company Number: DE-ROCHE-1389810

PATIENT
  Age: 57 Year
  Sex: Female
  Weight: 82 kg

DRUGS (6)
  1. BEVACIZUMAB [Suspect]
     Indication: OVARIAN CANCER
     Dosage: DATE OF LAST DOSE PRIOR TO SAE: 14/APR/2014
     Route: 042
     Dates: start: 20120402
  2. CARBOPLATIN [Suspect]
     Indication: OVARIAN CANCER
     Dosage: DATE OF LAST DOSE PRIOR TO SAE: 16/JUL/2012, DAILY DOSE: 5AUC
     Route: 042
     Dates: start: 20120402
  3. PACLITAXEL [Suspect]
     Indication: OVARIAN CANCER
     Dosage: DATE OF LAST DOSE PRIOR TO SAE : 16/JUL/2012
     Route: 042
     Dates: start: 20120402
  4. ATENOLOL [Concomitant]
     Indication: HYPERTENSION
     Dosage: LAST DOSE PRIOR TO SAE: 25 APR 2014
     Route: 048
     Dates: start: 20140304
  5. RAMIPRIL [Concomitant]
     Indication: HYPERTENSION
     Dosage: LAST DOSE PRIOR TO SAE: 22 APR 2014
     Route: 048
     Dates: start: 201309
  6. EFEROX [Concomitant]
     Indication: HYPOTHYROIDISM
     Dosage: LAST DOSE PRIOR TO SAE: 22 APR 2014
     Route: 048
     Dates: start: 200505

REACTIONS (1)
  - Headache [Recovered/Resolved]
